FAERS Safety Report 20421283 (Version 1)
Quarter: 2022Q1

REPORT INFORMATION
  Report Type: Spontaneous
  Country: US (occurrence: None)
  Receive Date: 20220203
  Receipt Date: 20220203
  Transmission Date: 20220423
  Serious: Yes (Hospitalization)
  Sender: FDA-Public Use
  Company Number: None

PATIENT
  Age: 16 Year
  Sex: Male

DRUGS (2)
  1. HERBALS\HEXAHYDROCANNABINOL O-ACETATE [Suspect]
     Active Substance: HERBALS\HEXAHYDROCANNABINOL O-ACETATE
     Indication: Product used for unknown indication
  2. .DELTA.10-TETRAHYDROCANNABINOL\HERBALS [Suspect]
     Active Substance: .DELTA.10-TETRAHYDROCANNABINOL\HERBALS
     Indication: Product used for unknown indication

REACTIONS (5)
  - Psychotic disorder [None]
  - Mania [None]
  - Aggression [None]
  - Product administration error [None]
  - Wrong dose [None]

NARRATIVE: CASE EVENT DATE: 20220130
